FAERS Safety Report 9527547 (Version 1)
Quarter: 2013Q1

REPORT INFORMATION
  Report Type: Spontaneous
  Country: US (occurrence: None)
  Receive Date: 20130314
  Receipt Date: 20130314
  Transmission Date: 20140127
  Serious: No
  Sender: FDA-Public Use
  Company Number: 1212USA008014

PATIENT
  Age: 66 Year
  Sex: Female
  Weight: 81.6 kg

DRUGS (4)
  1. VICTRELIS (BOCEPREVIR) CAPSULE, 200MG [Suspect]
     Dosage: 800 MG (4 CAPSULES OF 200 MG EACH BY MOUTH THREE TIMES A DAY EVERY 7-9 HOURS WITH FOOD), TID, ORAL
  2. RIBAVIRIN [Suspect]
  3. PEGASYS (PEGINTERFERON ALFA-2A) INJECTION [Suspect]
     Dosage: 180 MICROGRAMS/M
  4. NEUPOGEN (FILGRASTIM) [Concomitant]

REACTIONS (4)
  - White blood cell count decreased [None]
  - Dry skin [None]
  - Rash [None]
  - Pollakiuria [None]
